FAERS Safety Report 17893545 (Version 1)
Quarter: 2020Q2

REPORT INFORMATION
  Report Type: Spontaneous
  Country: FR (occurrence: FR)
  Receive Date: 20200615
  Receipt Date: 20200615
  Transmission Date: 20200714
  Serious: Yes (Hospitalization, Other)
  Sender: FDA-Public Use
  Company Number: FR-CADILA HEALTHCARE LIMITED-FR-ZYDUS-014302

PATIENT

DRUGS (1)
  1. METFORMIN [Suspect]
     Active Substance: METFORMIN HYDROCHLORIDE
     Indication: TYPE 2 DIABETES MELLITUS
     Route: 065

REACTIONS (16)
  - Anaemia [Unknown]
  - Metabolic syndrome [Unknown]
  - Melaena [Unknown]
  - Blood lactic acid increased [Recovered/Resolved]
  - Lactic acidosis [Recovered/Resolved]
  - Liver disorder [Unknown]
  - Duodenal ulcer [Unknown]
  - Thrombosis [Unknown]
  - Ischaemic hepatitis [Unknown]
  - Hypovolaemic shock [Unknown]
  - Haemorrhage [Unknown]
  - Hyperkalaemia [Unknown]
  - Nephropathy [Unknown]
  - Diarrhoea [Recovered/Resolved]
  - Hepatocellular injury [Unknown]
  - Hepatic steatosis [Unknown]
